FAERS Safety Report 8578062-X (Version None)
Quarter: 2012Q3

REPORT INFORMATION
  Report Type: 
  Country: None (occurrence: None)
  Receive Date: 20120808
  Receipt Date: 20120804
  Transmission Date: 20120928
  Serious: Yes (Death)
  Sender: FDA-Public Use
  Company Number: PHHY2012MX067673

PATIENT
  Age: 92 Year
  Sex: Male

DRUGS (1)
  1. ONBREZ [Suspect]
     Indication: ASTHMA
     Dosage: 150 UG, QD
     Dates: start: 20110301

REACTIONS (1)
  - PNEUMONIA [None]
